FAERS Safety Report 14316718 (Version 5)
Quarter: 2018Q2

REPORT INFORMATION
  Report Type: Spontaneous
  Country: US (occurrence: US)
  Receive Date: 20171222
  Receipt Date: 20180608
  Transmission Date: 20180711
  Serious: Yes (Other)
  Sender: FDA-Public Use
  Company Number: US-PFIZER INC-2017328584

PATIENT
  Age: 65 Year
  Sex: Female
  Weight: 72.57 kg

DRUGS (6)
  1. LETROZOLE. [Suspect]
     Active Substance: LETROZOLE
     Indication: BREAST CANCER STAGE IV
     Dosage: UNK, DAILY
  2. LETROZOLE. [Suspect]
     Active Substance: LETROZOLE
     Indication: HEPATIC LESION
  3. IBRANCE [Suspect]
     Active Substance: PALBOCICLIB
     Indication: BREAST CANCER FEMALE
     Dosage: 100 MG, CYCLIC (DAILY FOR 21 DAYS EVERY 28 DAYS)
  4. IBRANCE [Suspect]
     Active Substance: PALBOCICLIB
     Dosage: 75 MG, UNK
  5. IBRANCE [Suspect]
     Active Substance: PALBOCICLIB
     Dosage: 75 MG, CYCLIC(ONCE A DAY, TAKE IT FOR 28 DAYS THEN OFF FOR A WEEK)
  6. LISINOPRIL. [Concomitant]
     Active Substance: LISINOPRIL
     Indication: HYPERTENSION
     Dosage: 20 MG, 2X/DAY

REACTIONS (4)
  - Subcutaneous abscess [Unknown]
  - Rash [Unknown]
  - Skin exfoliation [Unknown]
  - Epistaxis [Unknown]
